FAERS Safety Report 7155850-8 (Version None)
Quarter: 2010Q4

REPORT INFORMATION
  Report Type: 
  Country: None (occurrence: None)
  Receive Date: 20101214
  Receipt Date: 20101203
  Transmission Date: 20110411
  Serious: Yes (Other)
  Sender: FDA-Public Use
  Company Number: CH-JNJFOC-20101201998

PATIENT
  Age: 21 Year
  Sex: Male

DRUGS (4)
  1. REMICADE [Suspect]
     Indication: CROHN'S DISEASE
     Route: 042
  2. REMICADE [Suspect]
     Route: 042
  3. IMUREK [Concomitant]
     Indication: CROHN'S DISEASE
     Route: 065
  4. SOLU-MEDROL [Concomitant]
     Indication: PREMEDICATION

REACTIONS (3)
  - CEREBRAL ISCHAEMIA [None]
  - PARESIS [None]
  - SENSATION OF HEAVINESS [None]
